FAERS Safety Report 8401051-2 (Version None)
Quarter: 2012Q2

REPORT INFORMATION
  Report Type: 
  Country: None (occurrence: None)
  Receive Date: 20120525
  Receipt Date: 20120518
  Transmission Date: 20120825
  Serious: Yes (Hospitalization)
  Sender: FDA-Public Use
  Company Number: WAES 1205USA03411

PATIENT
  Age: 56 Year
  Sex: Male

DRUGS (5)
  1. VELCADE [Suspect]
     Indication: MULTIPLE MYELOMA
     Dosage: 1.3 MG/M2, UNK, IV
     Route: 042
     Dates: start: 20110902, end: 20111119
  2. DECADRON [Suspect]
     Indication: MULTIPLE MYELOMA
     Dosage: 40 MG, WKY, UNK
     Dates: start: 20110902, end: 20111119
  3. REVLIMID [Suspect]
     Indication: MULTIPLE MYELOMA
     Dosage: 15 MG, DAILY, PO
     Route: 048
     Dates: start: 20110902, end: 20111119
  4. DIGOXIN [Concomitant]
  5. CYTOXAN [Suspect]
     Indication: MULTIPLE MYELOMA
     Dosage: 200 MG, DAILY, IV
     Route: 042
     Dates: start: 20110902, end: 20111119

REACTIONS (8)
  - ASTHENIA [None]
  - BLOOD GLUCOSE INCREASED [None]
  - HEART RATE IRREGULAR [None]
  - PALPITATIONS [None]
  - HAEMATOCRIT DECREASED [None]
  - DYSPNOEA [None]
  - PLATELET COUNT DECREASED [None]
  - RED BLOOD CELL COUNT DECREASED [None]
